FAERS Safety Report 15715824 (Version 1)
Quarter: 2018Q4

REPORT INFORMATION
  Report Type: Spontaneous
  Country: DE (occurrence: DE)
  Receive Date: 20181212
  Receipt Date: 20181212
  Transmission Date: 20190205
  Serious: Yes (Other)
  Sender: FDA-Public Use
  Company Number: DE-JNJFOC-20181205961

PATIENT
  Sex: Female

DRUGS (2)
  1. REGAINE FRAUEN 2% [Suspect]
     Active Substance: MINOXIDIL
     Route: 061
  2. REGAINE FRAUEN 2% [Suspect]
     Active Substance: MINOXIDIL
     Indication: PRODUCT USED FOR UNKNOWN INDICATION
     Dosage: STARTED SINCE JAN (UNSPECIFIED DATE AND YEAR)
     Route: 061

REACTIONS (2)
  - Arrhythmia [Unknown]
  - Dandruff [Unknown]
